FAERS Safety Report 17057332 (Version 1)
Quarter: 2019Q4

REPORT INFORMATION
  Report Type: Spontaneous
  Country: US (occurrence: US)
  Receive Date: 20191121
  Receipt Date: 20191121
  Transmission Date: 20200122
  Serious: Yes (Other)
  Sender: FDA-Public Use
  Company Number: US-ZYDUS-043200

PATIENT
  Age: 51 Year
  Sex: Male

DRUGS (1)
  1. FLUCONAZOLE. [Suspect]
     Active Substance: FLUCONAZOLE
     Indication: PNEUMONIA CRYPTOCOCCAL
     Route: 065

REACTIONS (3)
  - Perivascular dermatitis [Unknown]
  - Rash pruritic [Recovered/Resolved]
  - Rash erythematous [Recovered/Resolved]
